FAERS Safety Report 20979067 (Version 2)
Quarter: 2024Q2

REPORT INFORMATION
  Report Type: Spontaneous
  Country: US (occurrence: US)
  Receive Date: 20220619
  Receipt Date: 20240415
  Transmission Date: 20240716
  Serious: No
  Sender: FDA-Public Use
  Company Number: US-SA-SAC20220614001623

PATIENT
  Age: 52 Year
  Sex: Female

DRUGS (2)
  1. CERDELGA [Suspect]
     Active Substance: ELIGLUSTAT
     Indication: Gaucher^s disease
     Dosage: 84 MG, BID
     Route: 048
     Dates: start: 202201, end: 202206
  2. CERDELGA [Suspect]
     Active Substance: ELIGLUSTAT
     Dosage: 84 MG, BID
     Route: 048

REACTIONS (3)
  - Malaise [Unknown]
  - Sleep disorder due to general medical condition, hypersomnia type [Unknown]
  - Product dose omission in error [Unknown]

NARRATIVE: CASE EVENT DATE: 20220601
